FAERS Safety Report 18048991 (Version 1)
Quarter: 2020Q3

REPORT INFORMATION
  Report Type: Spontaneous
  Country: US (occurrence: US)
  Receive Date: 20200721
  Receipt Date: 20200721
  Transmission Date: 20201103
  Serious: No
  Sender: FDA-Public Use
  Company Number: US-MYLANLABS-2020M1063659

PATIENT
  Sex: Female
  Weight: 64 kg

DRUGS (3)
  1. ESTRADIOL TRANSDERMAL SYSTEM [Suspect]
     Active Substance: ESTRADIOL
     Indication: HORMONE REPLACEMENT THERAPY
     Dosage: 75 MILLIGRAM (HOUR)
     Dates: start: 20200529, end: 20200629
  2. IBUPROFEN. [Concomitant]
     Active Substance: IBUPROFEN
     Indication: ARTHRALGIA
     Dosage: 800 MILLIGRAM, PRN ( NEEDED UP TO THREE TIMES)
  3. ESTRADIOL TRANSDERMAL SYSTEM [Suspect]
     Active Substance: ESTRADIOL
     Indication: HOT FLUSH

REACTIONS (4)
  - Application site irritation [Recovered/Resolved]
  - Hormone level abnormal [Unknown]
  - Product adhesion issue [Unknown]
  - Hot flush [Recovered/Resolved]
